FAERS Safety Report 8249082-X (Version None)
Quarter: 2012Q2

REPORT INFORMATION
  Report Type: 
  Country: None (occurrence: None)
  Receive Date: 20120402
  Receipt Date: 20120327
  Transmission Date: 20120825
  Serious: Yes (Other)
  Sender: FDA-Public Use
  Company Number: US-PFIZER INC-2012036452

PATIENT
  Sex: Female

DRUGS (2)
  1. WELLBUTRIN XL [Concomitant]
     Indication: DEPRESSION
     Dosage: UNK
  2. LYRICA [Suspect]
     Indication: FIBROMYALGIA
     Dosage: 100 MG, 3X/DAY
     Route: 048
     Dates: end: 20120201

REACTIONS (5)
  - DEPRESSION [None]
  - NAUSEA [None]
  - INSOMNIA [None]
  - ANXIETY [None]
  - PRURITUS [None]
